FAERS Safety Report 15082174 (Version 2)
Quarter: 2018Q3

REPORT INFORMATION
  Report Type: Spontaneous
  Country: US (occurrence: US)
  Receive Date: 20180628
  Receipt Date: 20180716
  Transmission Date: 20181010
  Serious: Yes (Other)
  Sender: FDA-Public Use
  Company Number: US-CIPLA (EU) LIMITED-2018US19561

PATIENT

DRUGS (8)
  1. TOPIRAMATE. [Suspect]
     Active Substance: TOPIRAMATE
     Dosage: UNK, QD (100 MG, HALF A TABLET ONCE A DAY)
     Route: 048
     Dates: start: 20180618, end: 20180619
  2. TOPIRAMATE. [Suspect]
     Active Substance: TOPIRAMATE
     Indication: BIPOLAR DISORDER
     Dosage: 2 DF, BID (200 MG, 2 TABLETS)
     Route: 048
     Dates: start: 2014, end: 201805
  3. TOPIRAMATE. [Suspect]
     Active Substance: TOPIRAMATE
     Dosage: UNK, QD (100 MG, QUARTER TABLET, 3 TABLETS ONCE A DAY)
     Route: 048
     Dates: start: 20180620, end: 20180621
  4. BOTOX [Concomitant]
     Active Substance: ONABOTULINUMTOXINA
     Indication: MIGRAINE
     Dosage: UNK
     Route: 065
     Dates: start: 201803
  5. INTUNIV [Concomitant]
     Active Substance: GUANFACINE HYDROCHLORIDE
     Indication: ATTENTION DEFICIT/HYPERACTIVITY DISORDER
     Dosage: 3 MG, BID
     Route: 065
     Dates: start: 2015
  6. TOPIRAMATE. [Suspect]
     Active Substance: TOPIRAMATE
     Dosage: 100 MG, QD, 1 TABLET
     Route: 048
     Dates: start: 2018
  7. TOPIRAMATE. [Suspect]
     Active Substance: TOPIRAMATE
     Dosage: UNK, QD (100 MG, QUARTER TABLET, ONE TABLET ONCE A DAY)
     Route: 048
     Dates: start: 20180622
  8. TOPIRAMATE. [Suspect]
     Active Substance: TOPIRAMATE
     Indication: HEADACHE
     Dosage: 2 DF, QD (100 MG, 2 TABLETS ONCE A DAY)
     Route: 048
     Dates: start: 201805, end: 2018

REACTIONS (9)
  - Brain injury [Unknown]
  - Amnesia [Not Recovered/Not Resolved]
  - Off label use [Unknown]
  - Drug administration error [Unknown]
  - Accident [Unknown]
  - Body temperature increased [Not Recovered/Not Resolved]
  - Feeling drunk [Not Recovered/Not Resolved]
  - Weight decreased [Not Recovered/Not Resolved]
  - Dizziness [Not Recovered/Not Resolved]

NARRATIVE: CASE EVENT DATE: 2014
